FAERS Safety Report 24535476 (Version 2)
Quarter: 2024Q4

REPORT INFORMATION
  Report Type: Spontaneous
  Country: DE (occurrence: DE)
  Receive Date: 20241022
  Receipt Date: 20241025
  Transmission Date: 20250114
  Serious: Yes (Other)
  Sender: NOVARTIS
  Company Number: DE-ITM MEDICAL ISOTOPES GMBH-ITMDE2024000442

PATIENT
  Age: 49 Year
  Sex: Male

DRUGS (15)
  1. LUTETIUM OXODOTREOTIDE LU-177 [Suspect]
     Active Substance: LUTETIUM OXODOTREOTIDE LU-177
     Indication: Neuroendocrine tumour
     Dosage: INITIAL PRRT TREATMENT# 6.8 GBQ OF LU-177 DOTATATE
     Route: 065
     Dates: start: 202301, end: 202301
  2. LUTETIUM OXODOTREOTIDE LU-177 [Suspect]
     Active Substance: LUTETIUM OXODOTREOTIDE LU-177
     Dosage: SECOND PRRT TREATMENT# 6.8 GBQ OF LU-177 DOTATATE
     Route: 065
     Dates: start: 202304, end: 202304
  3. LUTETIUM OXODOTREOTIDE LU-177 [Suspect]
     Active Substance: LUTETIUM OXODOTREOTIDE LU-177
     Dosage: THIRD PRRT TREATMENT# 6.8 GBQ OF LU-177 DOTATATE
     Route: 065
     Dates: start: 202312, end: 202312
  4. LUTETIUM CHLORIDE LU-177 [Suspect]
     Active Substance: LUTETIUM CHLORIDE LU-177
     Indication: Radioisotope therapy
     Dosage: INITIAL PRRT TREATMENT# 6.8 GBQ OF LU-177 DOTATATE
     Route: 065
     Dates: start: 202301, end: 202301
  5. LUTETIUM CHLORIDE LU-177 [Suspect]
     Active Substance: LUTETIUM CHLORIDE LU-177
     Dosage: SECOND PRRT TREATMENT# 6.8 GBQ OF LU-177 DOTATATE
     Route: 065
     Dates: start: 202304, end: 202304
  6. LUTETIUM CHLORIDE LU-177 [Suspect]
     Active Substance: LUTETIUM CHLORIDE LU-177
     Dosage: THIRD PRRT TREATMENT# 6.8 GBQ OF LU-177 DOTATATE
     Route: 065
     Dates: start: 202312, end: 202312
  7. EVEROLIMUS [Suspect]
     Active Substance: EVEROLIMUS
     Indication: Neuroendocrine carcinoma metastatic
     Dosage: 5 MG, QD
     Route: 065
     Dates: start: 202208, end: 202304
  8. TELOTRISTAT ETHYL [Suspect]
     Active Substance: TELOTRISTAT ETHYL
     Indication: Neuroendocrine carcinoma
     Dosage: UNK
     Route: 065
  9. LANREOTIDE [Concomitant]
     Active Substance: LANREOTIDE
     Indication: Neuroendocrine carcinoma
     Dosage: 120 MILLIGRAM,EVERY 2 MONTHS
     Route: 058
     Dates: end: 202208
  10. LANREOTIDE [Concomitant]
     Active Substance: LANREOTIDE
     Dosage: 120 MG, Q2W
     Route: 058
     Dates: start: 202208
  11. HYDROCORTISONE [Concomitant]
     Active Substance: HYDROCORTISONE
     Indication: Neuroendocrine carcinoma
     Dosage: 10 MILLIGRAM (2-1-0)
     Route: 048
  12. BEDAQUILINE [Concomitant]
     Active Substance: BEDAQUILINE
     Indication: Tuberculosis
     Dosage: 400 MG (1-0-0 )
     Route: 065
     Dates: start: 2023
  13. LINEZOLID [Concomitant]
     Active Substance: LINEZOLID
     Indication: Tuberculosis
     Dosage: 600 MG (1-0-0)
     Route: 065
     Dates: start: 2023
  14. MOXIFLOXACIN [Concomitant]
     Active Substance: MOXIFLOXACIN
     Indication: Tuberculosis
     Dosage: 600 MG (1-0-0)
     Route: 065
     Dates: start: 2023
  15. PRETOMANID [Concomitant]
     Active Substance: PRETOMANID
     Indication: Tuberculosis
     Dosage: 200 MG (1-0-0)
     Route: 065
     Dates: start: 2023

REACTIONS (5)
  - Pulmonary tuberculosis [Recovered/Resolved]
  - Diarrhoea [Recovered/Resolved]
  - Pancytopenia [Unknown]
  - Weight decreased [Unknown]
  - Drug ineffective [Unknown]

NARRATIVE: CASE EVENT DATE: 20230101
